FAERS Safety Report 5395222-X (Version None)
Quarter: 2007Q3

REPORT INFORMATION
  Report Type: 
  Country: None (occurrence: None)
  Receive Date: 20070724
  Receipt Date: 20061031
  Transmission Date: 20080115
  Serious: No
  Sender: FDA-Public Use
  Company Number: US-BRISTOL-MYERS SQUIBB COMPANY-13561741

PATIENT
  Age: 87 Year
  Sex: Male
  Weight: 63 kg

DRUGS (1)
  1. AMIKACIN [Suspect]
     Indication: URINARY BLADDER HAEMORRHAGE
     Route: 015
     Dates: start: 20061028

REACTIONS (1)
  - MEDICATION ERROR [None]
